FAERS Safety Report 8842734 (Version 3)
Quarter: 2013Q1

REPORT INFORMATION
  Report Type: Report from Study
  Country: US (occurrence: US)
  Receive Date: 20121016
  Receipt Date: 20130111
  Transmission Date: 20140127
  Serious: Yes (Hospitalization, Other)
  Sender: FDA-Public Use
  Company Number: US-ABBOTT-12P-163-0993285-00

PATIENT
  Age: 11 None
  Sex: Female

DRUGS (7)
  1. HUMIRA [Suspect]
     Indication: CROHN^S DISEASE
     Dosage: 3.2 ML DAY 1
     Route: 058
     Dates: start: 20120921, end: 20121001
  2. HUMIRA [Suspect]
     Dosage: 1.6 ML DAY 15
     Route: 058
  3. HUMIRA [Suspect]
     Route: 058
  4. SYNTHROID [Concomitant]
     Indication: PRODUCT USED FOR UNKNOWN INDICATION
  5. FERROUS SULFATE [Concomitant]
     Indication: PRODUCT USED FOR UNKNOWN INDICATION
  6. PRILOSEC [Concomitant]
     Indication: PRODUCT USED FOR UNKNOWN INDICATION
  7. FOLIC ACID [Concomitant]
     Indication: PRODUCT USED FOR UNKNOWN INDICATION

REACTIONS (10)
  - Transfusion [Unknown]
  - Tremor [Unknown]
  - Pain in extremity [Unknown]
  - Haematochezia [Unknown]
  - Haematocrit decreased [Unknown]
  - Haemoglobin decreased [Unknown]
  - Anaemia [Unknown]
  - Upper respiratory tract infection [Unknown]
  - Increased tendency to bruise [Unknown]
  - Angina pectoris [Unknown]
